FAERS Safety Report 7685310-7 (Version None)
Quarter: 2011Q3

REPORT INFORMATION
  Report Type: 
  Country: None (occurrence: None)
  Receive Date: 20110816
  Receipt Date: 20110805
  Transmission Date: 20111222
  Serious: Yes (Hospitalization)
  Sender: FDA-Public Use
  Company Number: FR-JNJFOC-20110804919

PATIENT
  Sex: Female

DRUGS (7)
  1. LAMICTAL [Suspect]
     Indication: STATUS EPILEPTICUS
     Route: 048
     Dates: start: 20110624, end: 20110628
  2. VIMPAT [Suspect]
     Route: 048
     Dates: start: 20110628
  3. TOPIRAMATE [Suspect]
     Indication: STATUS EPILEPTICUS
     Route: 048
     Dates: start: 20110401, end: 20110628
  4. POTASSIUM CHLORIDE [Concomitant]
     Indication: HYPOKALAEMIA
     Route: 048
     Dates: start: 20110629, end: 20110630
  5. VALPROIC ACID [Concomitant]
     Indication: GRAND MAL CONVULSION
     Route: 042
  6. VIMPAT [Suspect]
     Indication: STATUS EPILEPTICUS
     Route: 048
     Dates: start: 20110629
  7. VALPROATE SODIUM [Concomitant]
     Indication: STATUS EPILEPTICUS
     Route: 048
     Dates: start: 20060101

REACTIONS (2)
  - STATUS EPILEPTICUS [None]
  - DRUG INTOLERANCE [None]
